FAERS Safety Report 17297168 (Version 1)
Quarter: 2020Q1

REPORT INFORMATION
  Report Type: Spontaneous
  Country: CA (occurrence: CA)
  Receive Date: 20200121
  Receipt Date: 20200121
  Transmission Date: 20200409
  Serious: Yes (Other)
  Sender: FDA-Public Use
  Company Number: CA-TEVA-2020-CA-1172076

PATIENT
  Age: 54 Year
  Sex: Male
  Weight: 46.31 kg

DRUGS (4)
  1. MYLAN EFAVIRENZ/EMTRICITABINE/TENOFOVIRDISOPROXIL FUMARATE [Suspect]
     Active Substance: EFAVIRENZ\EMTRICITABINE\TENOFOVIR DISOPROXIL FUMARATE
     Route: 065
  2. FERROUS FUMARATE [Concomitant]
     Active Substance: FERROUS FUMARATE
  3. TEVAEFAVIRENZ/EMTRICITABINE/TENOFOVIR [Suspect]
     Active Substance: EFAVIRENZ\EMTRICITABINE\TENOFOVIR DISOPROXIL FUMARATE
     Route: 065
  4. ACYCLOVIR. [Concomitant]
     Active Substance: ACYCLOVIR

REACTIONS (4)
  - Product substitution issue [Unknown]
  - Dizziness [Unknown]
  - Nightmare [Unknown]
  - Confusional state [Unknown]
